FAERS Safety Report 8052480-0 (Version None)
Quarter: 2012Q1

REPORT INFORMATION
  Report Type: 
  Country: None (occurrence: None)
  Receive Date: 20120118
  Receipt Date: 20120113
  Transmission Date: 20120608
  Serious: Yes (Other)
  Sender: FDA-Public Use
  Company Number: US-PFIZER INC-2012001676

PATIENT
  Sex: Female
  Weight: 60.771 kg

DRUGS (14)
  1. ALTACE [Concomitant]
     Indication: HYPERTENSION
     Dosage: 10 MG, 1X/DAY
  2. LIPITOR [Suspect]
     Indication: BLOOD CHOLESTEROL INCREASED
     Dosage: 40 MG, 1X/DAY
     Route: 048
  3. VITAMIN D [Concomitant]
     Dosage: UNK
  4. CALCIUM [Concomitant]
     Dosage: UNK
  5. FISH OIL [Concomitant]
     Dosage: 100 MG, 1X/DAY
  6. ALDACTAZIDE [Concomitant]
     Indication: HYPERTENSION
     Dosage: SPIRONOLACTONE 25MG/HYDROCHLOROTHIAZIDE 25 MG, EVERY OTHER DAY
  7. ACETYLSALICYLIC ACID [Concomitant]
     Indication: HYPERTENSION
     Dosage: 81 MG, 1X/DAY
  8. NORVASC [Concomitant]
     Indication: HYPERTENSION
     Dosage: 2.5 MG, 1X/DAY
  9. VITAMIN E [Concomitant]
     Dosage: 200 MG, 1X/DAY
  10. COENZYME Q10 [Concomitant]
     Dosage: 200 MG, 1X/DAY
  11. LIPITOR [Suspect]
     Indication: LOW DENSITY LIPOPROTEIN ABNORMAL
     Dosage: 40 MG, DAILY
     Route: 048
  12. ZITHROMAX [Suspect]
     Indication: PNEUMONIA
     Dosage: 2 TABLETS OF UNK DOSE ON FIRST DAY AND SECOND DAY AT ONE TABLET OF UNK DOSE DAILY FOR 4 DAYS
     Route: 048
     Dates: start: 20120101, end: 20120101
  13. XANAX [Concomitant]
     Indication: ANXIETY
     Dosage: UNK
  14. VITAMIN C [Concomitant]
     Dosage: 500 MG, 1X/DAY

REACTIONS (5)
  - BLOOD CHOLESTEROL INCREASED [None]
  - DRUG INEFFECTIVE [None]
  - PNEUMONIA [None]
  - BLOOD CHOLESTEROL ABNORMAL [None]
  - NASOPHARYNGITIS [None]
